FAERS Safety Report 8455978-6 (Version None)
Quarter: 2012Q2

REPORT INFORMATION
  Report Type: 
  Country: None (occurrence: None)
  Receive Date: 20120621
  Receipt Date: 20120619
  Transmission Date: 20120825
  Serious: Yes (Other)
  Sender: FDA-Public Use
  Company Number: US-ROCHE-1055256

PATIENT
  Sex: Male
  Weight: 103.51 kg

DRUGS (2)
  1. ZELBORAF [Suspect]
     Route: 048
     Dates: start: 20120315
  2. ZELBORAF [Suspect]
     Indication: METASTATIC MALIGNANT MELANOMA
     Route: 048
     Dates: start: 20120301

REACTIONS (7)
  - RASH [None]
  - SUNBURN [None]
  - SQUAMOUS CELL CARCINOMA [None]
  - MASS [None]
  - ACNE [None]
  - ALOPECIA [None]
  - PRURITUS [None]
